FAERS Safety Report 13106025 (Version 2)
Quarter: 2017Q1

REPORT INFORMATION
  Report Type: Spontaneous
  Country: US (occurrence: US)
  Receive Date: 20170111
  Receipt Date: 20170214
  Transmission Date: 20170428
  Serious: Yes (Other)
  Sender: FDA-Public Use
  Company Number: US-JNJFOC-20170107074

PATIENT
  Sex: Male
  Weight: 83.92 kg

DRUGS (4)
  1. INVEGA SUSTENNA [Suspect]
     Active Substance: PALIPERIDONE PALMITATE
     Indication: ANTISOCIAL BEHAVIOUR
     Dosage: INITIATED 20 MONTHS AGO TO THIS REPORT
     Route: 030
     Dates: start: 2015
  2. HALDOL [Suspect]
     Active Substance: HALOPERIDOL
     Indication: AGGRESSION
     Route: 065
  3. INVEGA SUSTENNA [Suspect]
     Active Substance: PALIPERIDONE PALMITATE
     Indication: AGGRESSION
     Dosage: INITIATED 20 MONTHS AGO TO THIS REPORT
     Route: 030
     Dates: start: 2015
  4. INVEGA SUSTENNA [Suspect]
     Active Substance: PALIPERIDONE PALMITATE
     Indication: PSYCHOTIC DISORDER
     Dosage: INITIATED 20 MONTHS AGO TO THIS REPORT
     Route: 030
     Dates: start: 2015

REACTIONS (3)
  - Adverse drug reaction [Unknown]
  - Dental caries [Unknown]
  - Coronary artery occlusion [Unknown]

NARRATIVE: CASE EVENT DATE: 2016
